FAERS Safety Report 22614605 (Version 3)
Quarter: 2024Q3

REPORT INFORMATION
  Report Type: Report from Study
  Country: CA (occurrence: CA)
  Receive Date: 20230619
  Receipt Date: 20240710
  Transmission Date: 20241017
  Serious: Yes (Other)
  Sender: PIERRE FABRE MEDICAMENT
  Company Number: CA-PFM-2021-04502

PATIENT
  Age: 23 Year
  Sex: Female

DRUGS (6)
  1. PROPRANOLOL HYDROCHLORIDE [Suspect]
     Active Substance: PROPRANOLOL HYDROCHLORIDE
     Indication: Migraine
     Dosage: UNK
     Route: 065
  2. PROPRANOLOL HYDROCHLORIDE [Suspect]
     Active Substance: PROPRANOLOL HYDROCHLORIDE
     Indication: Off label use
  3. TOPIRAMATE [Suspect]
     Active Substance: TOPIRAMATE
     Indication: Migraine
     Dosage: 100 MG, UNKNOWN
     Route: 048
  4. BOTULINUM TOXIN TYPE A [Concomitant]
     Active Substance: BOTULINUM TOXIN TYPE A
     Indication: Product used for unknown indication
     Dosage: UNK
     Route: 065
  5. MIRENA [Concomitant]
     Active Substance: LEVONORGESTREL
     Indication: Product used for unknown indication
     Dosage: UNK
     Route: 065
  6. ONDANSETRON HYDROCHLORIDE [Concomitant]
     Active Substance: ONDANSETRON HYDROCHLORIDE
     Indication: Product used for unknown indication
     Dosage: UNK
     Route: 065

REACTIONS (6)
  - Hypoaesthesia [Unknown]
  - Pain [Unknown]
  - Drug intolerance [Unknown]
  - Drug ineffective for unapproved indication [Unknown]
  - Product use issue [Unknown]
  - Off label use [Unknown]
